FAERS Safety Report 5152410-5 (Version None)
Quarter: 2006Q4

REPORT INFORMATION
  Report Type: 
  Country: None (occurrence: None)
  Receive Date: 20061116
  Receipt Date: 20060307
  Transmission Date: 20070319
  Serious: Yes (Hospitalization)
  Sender: FDA-Public Use
  Company Number: US-ELI_LILLY_AND_COMPANY-US200606000229

PATIENT
  Age: 84 Year
  Sex: Female
  Weight: 81.632 kg

DRUGS (3)
  1. ZYPREXA [Suspect]
     Dosage: UNK, UNKNOWN
     Dates: start: 19981101, end: 20010101
  2. ZYPREXA [Suspect]
     Dosage: 2.5 MG, UNKNOWN
     Dates: start: 20060601
  3. METFORMIN [Concomitant]
     Dosage: UNK, UNKNOWN
     Dates: start: 19920101

REACTIONS (2)
  - CARDIAC DISORDER [None]
  - DIABETES MELLITUS [None]
